FAERS Safety Report 16163568 (Version 2)
Quarter: 2019Q2

REPORT INFORMATION
  Report Type: Spontaneous
  Country: US (occurrence: US)
  Receive Date: 20190405
  Receipt Date: 20190415
  Transmission Date: 20190711
  Serious: No
  Sender: FDA-Public Use
  Company Number: US-AMGEN-USASP2019049073

PATIENT
  Age: 72 Year
  Sex: Female

DRUGS (1)
  1. PROLIA [Suspect]
     Active Substance: DENOSUMAB
     Indication: PRODUCT USED FOR UNKNOWN INDICATION
     Dosage: UNK
     Route: 065
     Dates: start: 2017, end: 201804

REACTIONS (10)
  - Intervertebral disc degeneration [Unknown]
  - Tooth erosion [Recovered/Resolved]
  - Arthritis [Unknown]
  - Bone pain [Unknown]
  - Adverse event [Unknown]
  - Incorrect dose administered [Unknown]
  - Musculoskeletal disorder [Unknown]
  - Myalgia [Unknown]
  - Tooth infection [Recovered/Resolved]
  - Sciatica [Unknown]

NARRATIVE: CASE EVENT DATE: 201804
